FAERS Safety Report 14067147 (Version 1)
Quarter: 2017Q4

REPORT INFORMATION
  Report Type: Spontaneous
  Country: US (occurrence: US)
  Receive Date: 20171007
  Receipt Date: 20171007
  Transmission Date: 20180321
  Serious: Yes (Life-Threatening, Other)
  Sender: FDA-Public Use
  Company Number: None

PATIENT
  Sex: Female
  Weight: 108 kg

DRUGS (9)
  1. LISINOPRIL. [Concomitant]
     Active Substance: LISINOPRIL
  2. METFORMIN [Concomitant]
     Active Substance: METFORMIN HYDROCHLORIDE
  3. LORATIDINE [Concomitant]
     Active Substance: LORATADINE
  4. INSULIN PUMP WITH GLUCOSE SENSOR [Concomitant]
  5. ZOVIA [Concomitant]
     Active Substance: ETHINYL ESTRADIOL\ETHYNODIOL DIACETATE
  6. NOVOLOG [Concomitant]
     Active Substance: INSULIN ASPART
  7. LEVOTHYROXINE. [Concomitant]
     Active Substance: LEVOTHYROXINE
  8. TRULICITY [Suspect]
     Active Substance: DULAGLUTIDE
     Indication: DIABETES MELLITUS
     Dosage: ?          QUANTITY:4 INJECTION(S);OTHER FREQUENCY:WEEKLY;?
     Route: 058
     Dates: start: 20170819, end: 20170826
  9. MEDTRONIC [Concomitant]
     Active Substance: DEVICE

REACTIONS (9)
  - Hypophagia [None]
  - Nausea [None]
  - Hypoglycaemia [None]
  - Diarrhoea [None]
  - Dehydration [None]
  - Decreased appetite [None]
  - Vomiting [None]
  - Incoherent [None]
  - Dysarthria [None]

NARRATIVE: CASE EVENT DATE: 20170823
